FAERS Safety Report 24063664 (Version 1)
Quarter: 2024Q3

REPORT INFORMATION
  Report Type: Spontaneous
  Country: US (occurrence: US)
  Receive Date: 20240709
  Receipt Date: 20240709
  Transmission Date: 20241017
  Serious: No
  Sender: DR REDDYS
  Company Number: US-E2BLSMVVAL-SPO/USA/24/0009581

PATIENT
  Sex: Female

DRUGS (1)
  1. NICOTINE TRANSDERMAL SYSTEM STEP 2 [Suspect]
     Active Substance: NICOTINE
     Indication: Smoking cessation therapy
     Route: 062

REACTIONS (2)
  - Drug ineffective [Unknown]
  - Intentional overdose [Unknown]
